FAERS Safety Report 4853006-2 (Version None)
Quarter: 2005Q4

REPORT INFORMATION
  Report Type: 
  Country: None (occurrence: None)
  Receive Date: 20051212
  Receipt Date: 20051129
  Transmission Date: 20060501
  Serious: Yes (Hospitalization, Other)
  Sender: FDA-Public Use
  Company Number: HQWYE640018NOV05

PATIENT
  Age: 17 Year
  Sex: Female
  Weight: 80.2 kg

DRUGS (11)
  1. RAPAMUNE [Suspect]
     Indication: PROPHYLAXIS AGAINST TRANSPLANT REJECTION
     Dosage: SEE IMAGE
     Route: 048
     Dates: start: 20051004, end: 20051115
  2. RAPAMUNE [Suspect]
     Indication: PROPHYLAXIS AGAINST TRANSPLANT REJECTION
     Dosage: SEE IMAGE
     Route: 048
     Dates: start: 20051116, end: 20051116
  3. RAPAMUNE [Suspect]
     Indication: PROPHYLAXIS AGAINST TRANSPLANT REJECTION
     Dosage: SEE IMAGE
     Route: 048
     Dates: start: 20051117
  4. MYCOPHENOLATE MOFETIL (MYCOPHENOLATE MOFETIL,) [Suspect]
     Indication: PROPHYLAXIS AGAINST TRANSPLANT REJECTION
     Dosage: SEE IMAGE
     Dates: start: 20051101, end: 20051101
  5. MYCOPHENOLATE MOFETIL (MYCOPHENOLATE MOFETIL,) [Suspect]
     Indication: PROPHYLAXIS AGAINST TRANSPLANT REJECTION
     Dosage: SEE IMAGE
     Dates: end: 20051101
  6. MYCOPHENOLATE MOFETIL (MYCOPHENOLATE MOFETIL,) [Suspect]
     Indication: PROPHYLAXIS AGAINST TRANSPLANT REJECTION
     Dosage: SEE IMAGE
     Dates: start: 20051128, end: 20051129
  7. PREDNISONE [Suspect]
     Indication: PROPHYLAXIS AGAINST TRANSPLANT REJECTION
  8. THYMOGLOBULINE (ANTITHYMOCYTE IMMUNOLOGLOBULIN,) [Suspect]
     Indication: PROPHYLAXIS AGAINST TRANSPLANT REJECTION
     Dates: start: 20051117, end: 20051121
  9. THYMOGLOBULINE (ANTITHYMOCYTE IMMUNOLOGLOBULIN,) [Suspect]
     Indication: PROPHYLAXIS AGAINST TRANSPLANT REJECTION
     Dates: start: 20051123
  10. THYROID MEDICATION (THYROID MEDICATION) [Concomitant]
  11. LASIX [Concomitant]

REACTIONS (8)
  - DRUG INEFFECTIVE [None]
  - FLUID RETENTION [None]
  - KIDNEY TRANSPLANT REJECTION [None]
  - LEUKOPENIA [None]
  - OEDEMA [None]
  - PYREXIA [None]
  - WEIGHT INCREASED [None]
  - WHITE BLOOD CELL COUNT DECREASED [None]
